FAERS Safety Report 4738709-2 (Version None)
Quarter: 2005Q3

REPORT INFORMATION
  Report Type: 
  Country: None (occurrence: None)
  Receive Date: 20050803
  Receipt Date: 20050722
  Transmission Date: 20060218
  Serious: Yes (Hospitalization)
  Sender: FDA-Public Use
  Company Number: 2005062543

PATIENT
  Age: 49 Year
  Sex: Female
  Weight: 86 kg

DRUGS (12)
  1. ATORVASTATIN CALCIUM [Suspect]
     Indication: ILL-DEFINED DISORDER
     Dosage: 1 DF (DAILY), ORAL
     Route: 048
  2. ALDALIX (SPIRONOLACTONE, FUROSEMIDE) [Suspect]
     Indication: ESSENTIAL HYPERTENSION
     Dosage: 50 MG/20 MG (DAILY), ORAL
     Route: 048
     Dates: end: 20041215
  3. NAPROXEN [Suspect]
     Indication: ARTHROPATHY
     Dosage: 2 DF (500 MG, DAILY), ORAL
     Route: 048
     Dates: end: 20050207
  4. NEXIUM [Suspect]
     Indication: ILL-DEFINED DISORDER
     Dosage: 1 DF (DAILY), ORAL
     Route: 048
  5. PANOS (TETRAZEPAM) [Suspect]
     Indication: SLEEP DISORDER
     Dosage: 2 DF (50 MG DAILY), ORAL
     Route: 048
     Dates: end: 20041231
  6. NEXEN (NIMESULIDE) [Concomitant]
  7. VASTAREL (TRIMETAZIDINE HYDROCHLORIDE) [Concomitant]
  8. METEOSPASMYL (ALVERINE CITRATE, DL-METHIONINE) [Concomitant]
  9. MIZOLLEN (MIZOLASTINE) [Concomitant]
  10. OLMETEC (OLMESARTAN) [Concomitant]
  11. LEXOMIL (BROMAZEPAM) [Concomitant]
  12. NUCTALON (ESTAZOLAM) [Concomitant]

REACTIONS (3)
  - DERMATITIS BULLOUS [None]
  - PORPHYRIA NON-ACUTE [None]
  - PSEUDOPORPHYRIA [None]
